FAERS Safety Report 19607717 (Version 4)
Quarter: 2021Q3

REPORT INFORMATION
  Report Type: Spontaneous
  Country: US (occurrence: US)
  Receive Date: 20210726
  Receipt Date: 20210831
  Transmission Date: 20211014
  Serious: No
  Sender: FDA-Public Use
  Company Number: US-TEVA-2021-US-1934148

PATIENT
  Age: 65 Year
  Sex: Female

DRUGS (6)
  1. BUPRENORPHINE. [Suspect]
     Active Substance: BUPRENORPHINE
     Route: 065
  2. BUPRENORPHINE. [Suspect]
     Active Substance: BUPRENORPHINE
     Route: 065
  3. BUPRENORPHINE. [Suspect]
     Active Substance: BUPRENORPHINE
     Route: 065
  4. OXYCODONE [Concomitant]
     Active Substance: OXYCODONE
  5. BUPRENORPHINE. [Suspect]
     Active Substance: BUPRENORPHINE
     Indication: PAIN
     Dates: start: 202104
  6. BUPRENORPHINE. [Suspect]
     Active Substance: BUPRENORPHINE
     Route: 065

REACTIONS (11)
  - Wrong technique in product usage process [Unknown]
  - Product dose omission issue [Unknown]
  - Drug ineffective [Unknown]
  - Application site erythema [Unknown]
  - Application site burn [Unknown]
  - Withdrawal syndrome [Unknown]
  - Application site hypersensitivity [Unknown]
  - Application site pruritus [Unknown]
  - Application site swelling [Unknown]
  - Device adhesion issue [Unknown]
  - Middle insomnia [Unknown]

NARRATIVE: CASE EVENT DATE: 2021
